FAERS Safety Report 21599227 (Version 1)
Quarter: 2022Q4

REPORT INFORMATION
  Report Type: Spontaneous
  Country: US (occurrence: None)
  Receive Date: 20221114
  Receipt Date: 20221114
  Transmission Date: 20230113
  Serious: Yes (Other)
  Sender: FDA-Public Use
  Company Number: None

PATIENT
  Age: 70 Year
  Sex: Male

DRUGS (14)
  1. AMBRISENTAN [Suspect]
     Active Substance: AMBRISENTAN
     Indication: Pulmonary arterial hypertension
     Dosage: FREQUENCY : DAILY;?
     Route: 048
     Dates: start: 20220317
  2. UPTRAVI [Suspect]
     Active Substance: SELEXIPAG
  3. GABAPENTIN [Concomitant]
     Active Substance: GABAPENTIN
  4. FAMOTIDINE [Concomitant]
     Active Substance: FAMOTIDINE
  5. OMEPRAZOLE [Concomitant]
     Active Substance: OMEPRAZOLE
  6. SUCRALFATE [Concomitant]
     Active Substance: SUCRALFATE
  7. ALBUTEROL SULFATE [Concomitant]
     Active Substance: ALBUTEROL SULFATE
  8. Alvesco HFA [Concomitant]
  9. MORPHINE [Concomitant]
     Active Substance: MORPHINE
  10. ISOSORBIDE [Concomitant]
     Active Substance: ISOSORBIDE
  11. mononitrate [Concomitant]
  12. XARELTO [Concomitant]
     Active Substance: RIVAROXABAN
  13. ATORVASTATIN [Concomitant]
     Active Substance: ATORVASTATIN
  14. IRON DEXTRAN [Concomitant]
     Active Substance: IRON DEXTRAN

REACTIONS (4)
  - Oxygen saturation decreased [None]
  - Device connection issue [None]
  - Respiratory syncytial virus bronchitis [None]
  - Bronchiolitis [None]

NARRATIVE: CASE EVENT DATE: 20221017
